FAERS Safety Report 7319918-5 (Version None)
Quarter: 2011Q1

REPORT INFORMATION
  Report Type: 
  Country: None (occurrence: None)
  Receive Date: 20110228
  Receipt Date: 20101130
  Transmission Date: 20110831
  Serious: No
  Sender: FDA-Public Use
  Company Number: A0898150A

PATIENT
  Age: 41 Year
  Sex: Female

DRUGS (3)
  1. TRAZODONE [Concomitant]
  2. LAMICTAL [Suspect]
     Indication: BIPOLAR DISORDER
     Dosage: 200MGD PER DAY
     Route: 048
  3. LEXAPRO [Concomitant]

REACTIONS (6)
  - DIZZINESS [None]
  - WITHDRAWAL SYNDROME [None]
  - SPEECH DISORDER [None]
  - DRUG ADMINISTRATION ERROR [None]
  - FEELING ABNORMAL [None]
  - NAUSEA [None]
